FAERS Safety Report 18092626 (Version 2)
Quarter: 2020Q3

REPORT INFORMATION
  Report Type: Spontaneous
  Country: US (occurrence: US)
  Receive Date: 20200730
  Receipt Date: 20200731
  Transmission Date: 20201103
  Serious: Yes (Hospitalization, Other)
  Sender: FDA-Public Use
  Company Number: US-ABBVIE-20K-163-3499832-00

PATIENT
  Age: 31 Year
  Sex: Female

DRUGS (2)
  1. HUMIRA [Suspect]
     Active Substance: ADALIMUMAB
     Indication: PSORIATIC ARTHROPATHY
     Dosage: DRUG START DATE FEBRUARY OR MARCH
     Route: 058
     Dates: start: 202002
  2. HUMIRA [Suspect]
     Active Substance: ADALIMUMAB
     Indication: PSORIASIS
     Route: 058
     Dates: start: 2016, end: 201902

REACTIONS (9)
  - Diabetic complication [Recovered/Resolved]
  - Live birth [Unknown]
  - Maternal exposure during pregnancy [Unknown]
  - Migraine [Recovering/Resolving]
  - Pre-eclampsia [Recovered/Resolved]
  - Prolonged labour [Recovered/Resolved]
  - Muscle fatigue [Recovered/Resolved]
  - Diabetes mellitus [Recovering/Resolving]
  - Perinatal depression [Recovering/Resolving]

NARRATIVE: CASE EVENT DATE: 201902
